FAERS Safety Report 24286405 (Version 1)
Quarter: 2024Q3

REPORT INFORMATION
  Report Type: Report from Study
  Country: US (occurrence: US)
  Receive Date: 20240905
  Receipt Date: 20240905
  Transmission Date: 20241016
  Serious: Yes (Death)
  Sender: BAYER
  Company Number: US-BAYER-2024A127290

PATIENT
  Age: 88 Year
  Sex: Female
  Weight: 50.34 kg

DRUGS (20)
  1. ADEMPAS [Suspect]
     Active Substance: RIOCIGUAT
     Indication: Pulmonary arterial hypertension
     Dosage: UNK
     Dates: start: 20220809
  2. ADEMPAS [Suspect]
     Active Substance: RIOCIGUAT
     Indication: Pulmonary arterial hypertension
     Dosage: 1 MG, BID
     Route: 048
  3. FAMOTIDINE [Concomitant]
     Active Substance: FAMOTIDINE
  4. ELIQUIS [Concomitant]
     Active Substance: APIXABAN
  5. POTASSIUM CHLORIDE [Concomitant]
     Active Substance: POTASSIUM CHLORIDE
  6. EZETIMIBE [Concomitant]
     Active Substance: EZETIMIBE
  7. TYLENOL [Concomitant]
     Active Substance: ACETAMINOPHEN
  8. JARDIANCE [Concomitant]
     Active Substance: EMPAGLIFLOZIN
  9. PANTOPRAZOLE SODIUM [Concomitant]
     Active Substance: PANTOPRAZOLE SODIUM
  10. BUSPIRONE HCL [Concomitant]
     Active Substance: BUSPIRONE HYDROCHLORIDE
  11. METOLAZONE [Concomitant]
     Active Substance: METOLAZONE
  12. ASPIRIN [Concomitant]
     Active Substance: ASPIRIN
  13. LOSARTAN POTASSIUM [Concomitant]
     Active Substance: LOSARTAN POTASSIUM
  14. SERTRALINE HYDROCHLORIDE [Concomitant]
     Active Substance: SERTRALINE HYDROCHLORIDE
  15. AMIODARONE HYDROCHLORIDE [Concomitant]
     Active Substance: AMIODARONE HYDROCHLORIDE
  16. OXYGEN [Concomitant]
     Active Substance: OXYGEN
  17. SPIRONOLACTONE [Concomitant]
     Active Substance: SPIRONOLACTONE
  18. METOPROLOL TARTRATE [Concomitant]
     Active Substance: METOPROLOL TARTRATE
  19. TORSEMIDE [Concomitant]
     Active Substance: TORSEMIDE
  20. FUROSEMIDE [Concomitant]
     Active Substance: FUROSEMIDE

REACTIONS (2)
  - Death [Fatal]
  - Inappropriate schedule of product administration [None]

NARRATIVE: CASE EVENT DATE: 20240824
